FAERS Safety Report 20087761 (Version 1)
Quarter: 2021Q4

REPORT INFORMATION
  Report Type: Spontaneous
  Country: US (occurrence: US)
  Receive Date: 20211118
  Receipt Date: 20211118
  Transmission Date: 20220303
  Serious: Yes (Other)
  Sender: FDA-Public Use
  Company Number: US-HORIZON THERAPEUTICS-HZN-2021-008326

PATIENT

DRUGS (2)
  1. KRYSTEXXA [Suspect]
     Active Substance: PEGLOTICASE
     Indication: Product used for unknown indication
     Dosage: 8 MG, EVERY 2 WEEKS
     Route: 042
     Dates: start: 20210916
  2. KRYSTEXXA [Suspect]
     Active Substance: PEGLOTICASE
     Dosage: 8 MG, EVERY 2 WEEKS
     Route: 042
     Dates: start: 20211015

REACTIONS (2)
  - Cerebrovascular accident [Unknown]
  - Aphasia [Unknown]

NARRATIVE: CASE EVENT DATE: 20211021
